FAERS Safety Report 9846064 (Version 1)
Quarter: 2013Q4

REPORT INFORMATION
  Report Type: Spontaneous
  Country: US (occurrence: None)
  Receive Date: 20131223
  Receipt Date: 20131223
  Transmission Date: 20140711
  Serious: Yes (Other)
  Sender: FDA-Public Use
  Company Number: SYM-2013-01883

PATIENT
  Age: 79 Year
  Sex: Female

DRUGS (1)
  1. XENAZINE [Suspect]
     Indication: DYSKINESIA
     Route: 048
     Dates: start: 20121212

REACTIONS (2)
  - Tremor [None]
  - Dyskinesia [None]
